FAERS Safety Report 12212539 (Version 1)
Quarter: 2016Q1

REPORT INFORMATION
  Report Type: Spontaneous
  Country: US (occurrence: US)
  Receive Date: 20160327
  Receipt Date: 20160327
  Transmission Date: 20160526
  Serious: No
  Sender: FDA-Public Use
  Company Number: US-AMGEN-USASP2016035878

PATIENT
  Sex: Female

DRUGS (1)
  1. ENBREL [Suspect]
     Active Substance: ETANERCEPT
     Indication: PRODUCT USED FOR UNKNOWN INDICATION
     Dosage: UNK UNK, WEEKLY
     Route: 065

REACTIONS (3)
  - Injection site induration [Unknown]
  - Migraine [Unknown]
  - Injection site reaction [Unknown]

NARRATIVE: CASE EVENT DATE: 201603
